FAERS Safety Report 10170431 (Version 1)
Quarter: 2014Q2

REPORT INFORMATION
  Report Type: Spontaneous
  Country: IR (occurrence: IR)
  Receive Date: 20140513
  Receipt Date: 20140513
  Transmission Date: 20141212
  Serious: Yes (Other)
  Sender: FDA-Public Use
  Company Number: IR-BAXTER-2014BAX022917

PATIENT
  Age: 50 Year
  Sex: Male

DRUGS (4)
  1. KIOVIG (2,5 G/25 ML) [Suspect]
     Indication: THROMBOCYTOPENIA
     Route: 042
  2. KIOVIG (2,5 G/25 ML) [Suspect]
     Indication: OFF LABEL USE
  3. CYCLOSPORINE [Suspect]
     Indication: THROMBOCYTOPENIA
     Route: 048
  4. PREDNISONE [Suspect]
     Indication: THROMBOCYTOPENIA
     Route: 048

REACTIONS (1)
  - No therapeutic response [Recovered/Resolved]
